FAERS Safety Report 21660162 (Version 3)
Quarter: 2024Q4

REPORT INFORMATION
  Report Type: Other
  Country: CA (occurrence: CA)
  Receive Date: 20221130
  Receipt Date: 20241226
  Transmission Date: 20250114
  Serious: Yes (Hospitalization, Other)
  Sender: APOTEX
  Company Number: CA-APOTEX-2022AP016045

PATIENT
  Age: 9 Year
  Sex: Male

DRUGS (54)
  1. CIPROFLOXACIN [Interacting]
     Active Substance: CIPROFLOXACIN
     Indication: Mycobacterium fortuitum infection
     Dosage: UNK
     Route: 065
  2. CIPROFLOXACIN [Interacting]
     Active Substance: CIPROFLOXACIN
     Indication: Peritonitis bacterial
     Dosage: UNK
     Route: 048
  3. CIPROFLOXACIN [Interacting]
     Active Substance: CIPROFLOXACIN
     Indication: Device related infection
  4. CIPROFLOXACIN [Interacting]
     Active Substance: CIPROFLOXACIN
     Indication: Anti-infective therapy
  5. FLUCONAZOLE [Interacting]
     Active Substance: FLUCONAZOLE
     Indication: Antifungal prophylaxis
     Dosage: UNK
     Route: 048
  6. MOXIFLOXACIN [Interacting]
     Active Substance: MOXIFLOXACIN
     Indication: Mycobacterium fortuitum infection
     Dosage: UNK
     Route: 048
  7. MOXIFLOXACIN [Interacting]
     Active Substance: MOXIFLOXACIN
     Indication: Evidence based treatment
  8. MOXIFLOXACIN [Interacting]
     Active Substance: MOXIFLOXACIN
     Indication: Anti-infective therapy
  9. SERTRALINE [Interacting]
     Active Substance: SERTRALINE HYDROCHLORIDE
     Indication: Anxiety
     Dosage: UNK
     Route: 065
  10. SERTRALINE [Interacting]
     Active Substance: SERTRALINE HYDROCHLORIDE
     Indication: Behaviour disorder
  11. SERTRALINE [Interacting]
     Active Substance: SERTRALINE HYDROCHLORIDE
     Indication: Abnormal behaviour
  12. TACROLIMUS [Interacting]
     Active Substance: TACROLIMUS
     Indication: Immunosuppressant drug therapy
     Dosage: UNK
     Route: 065
  13. TACROLIMUS [Interacting]
     Active Substance: TACROLIMUS
     Indication: Prophylaxis against transplant rejection
  14. TACROLIMUS [Interacting]
     Active Substance: TACROLIMUS
     Indication: Prophylaxis
  15. TACROLIMUS [Interacting]
     Active Substance: TACROLIMUS
     Indication: Immunosuppression
  16. TACROLIMUS [Interacting]
     Active Substance: TACROLIMUS
     Indication: Donor specific antibody present
  17. LINEZOLID [Interacting]
     Active Substance: LINEZOLID
     Indication: Mycobacterium fortuitum infection
     Dosage: UNK
     Route: 048
  18. LINEZOLID [Interacting]
     Active Substance: LINEZOLID
     Indication: Peritonitis
     Dosage: UNK
     Route: 065
  19. LINEZOLID [Interacting]
     Active Substance: LINEZOLID
     Indication: Peritonitis bacterial
  20. LINEZOLID [Interacting]
     Active Substance: LINEZOLID
     Indication: Device related infection
  21. METHYLPHENIDATE [Interacting]
     Active Substance: METHYLPHENIDATE
     Indication: Anxiety
     Dosage: UNK
     Route: 065
  22. METHYLPHENIDATE [Interacting]
     Active Substance: METHYLPHENIDATE
     Indication: Behaviour disorder
  23. METHYLPHENIDATE [Interacting]
     Active Substance: METHYLPHENIDATE
     Indication: Abnormal behaviour
  24. PREDNISONE [Interacting]
     Active Substance: PREDNISONE
     Indication: Prophylaxis against transplant rejection
     Dosage: UNK
     Route: 065
  25. PREDNISONE [Interacting]
     Active Substance: PREDNISONE
     Indication: Immunosuppressant drug therapy
  26. PREDNISONE [Interacting]
     Active Substance: PREDNISONE
     Indication: Prophylaxis
  27. PREDNISONE [Interacting]
     Active Substance: PREDNISONE
     Indication: Donor specific antibody present
  28. ARIPIPRAZOLE [Interacting]
     Active Substance: ARIPIPRAZOLE
     Indication: Abnormal behaviour
     Dosage: UNK
     Route: 065
  29. ARIPIPRAZOLE [Interacting]
     Active Substance: ARIPIPRAZOLE
     Indication: Behaviour disorder
  30. ARIPIPRAZOLE [Interacting]
     Active Substance: ARIPIPRAZOLE
     Indication: Anxiety
  31. THYMOCYTE IMMUNE GLOBULIN NOS [Interacting]
     Active Substance: THYMOCYTE IMMUNE GLOBULIN NOS
     Indication: Prophylaxis against transplant rejection
     Dosage: UNK
     Route: 065
  32. AMIKACIN [Concomitant]
     Active Substance: AMIKACIN
     Indication: Peritonitis
     Dosage: UNK
     Route: 042
  33. AMIKACIN [Concomitant]
     Active Substance: AMIKACIN
     Indication: Evidence based treatment
  34. AMIKACIN [Concomitant]
     Active Substance: AMIKACIN
     Indication: Anti-infective therapy
  35. CEFAZOLIN SODIUM [Concomitant]
     Active Substance: CEFAZOLIN SODIUM
     Indication: Peritonitis
     Dosage: UNK
     Route: 033
  36. CEFAZOLIN SODIUM [Concomitant]
     Active Substance: CEFAZOLIN SODIUM
     Indication: Evidence based treatment
  37. CEFTAZIDIME [Concomitant]
     Active Substance: CEFTAZIDIME
     Indication: Peritonitis
     Dosage: UNK
     Route: 033
  38. CEFTAZIDIME [Concomitant]
     Active Substance: CEFTAZIDIME
     Indication: Evidence based treatment
  39. CEFTAZIDIME [Concomitant]
     Active Substance: CEFTAZIDIME
     Indication: Anti-infective therapy
  40. CLOFAZIMINE [Concomitant]
     Active Substance: CLOFAZIMINE
     Indication: Peritonitis
     Dosage: 50 MILLIGRAM, QD
     Route: 048
  41. CLOFAZIMINE [Concomitant]
     Active Substance: CLOFAZIMINE
     Indication: Mycobacterium fortuitum infection
  42. CLOFAZIMINE [Concomitant]
     Active Substance: CLOFAZIMINE
     Indication: Device related infection
  43. IMIPENEM [Concomitant]
     Active Substance: IMIPENEM
     Indication: Peritonitis
     Dosage: UNK
     Route: 042
  44. IMIPENEM [Concomitant]
     Active Substance: IMIPENEM
     Indication: Evidence based treatment
  45. IMIPENEM [Concomitant]
     Active Substance: IMIPENEM
     Indication: Anti-infective therapy
  46. SULFAMETHOXAZOLE\TRIMETHOPRIM [Concomitant]
     Active Substance: SULFAMETHOXAZOLE\TRIMETHOPRIM
     Indication: Peritonitis
     Dosage: UNK
     Route: 048
  47. SULFAMETHOXAZOLE\TRIMETHOPRIM [Concomitant]
     Active Substance: SULFAMETHOXAZOLE\TRIMETHOPRIM
     Indication: Evidence based treatment
  48. SULFAMETHOXAZOLE\TRIMETHOPRIM [Concomitant]
     Active Substance: SULFAMETHOXAZOLE\TRIMETHOPRIM
     Indication: Prophylaxis against transplant rejection
  49. VANCOMYCIN [Concomitant]
     Active Substance: VANCOMYCIN
     Indication: Bacterial infection
     Dosage: UNK
     Route: 033
  50. VANCOMYCIN [Concomitant]
     Active Substance: VANCOMYCIN
     Indication: Evidence based treatment
  51. CILASTATIN SODIUM\IMIPENEM [Concomitant]
     Active Substance: CILASTATIN SODIUM\IMIPENEM
     Indication: Evidence based treatment
     Dosage: UNK
     Route: 042
  52. THYMOCYTE IMMUNE GLOBULIN NOS [Concomitant]
     Active Substance: THYMOCYTE IMMUNE GLOBULIN NOS
     Indication: Prophylaxis against transplant rejection
     Dosage: UNK
     Route: 065
  53. DOXYCYCLINE [Concomitant]
     Active Substance: DOXYCYCLINE
     Indication: Product used for unknown indication
     Dosage: UNK
     Route: 065
  54. CLARITHROMYCIN [Concomitant]
     Active Substance: CLARITHROMYCIN
     Indication: Product used for unknown indication
     Dosage: UNK
     Route: 065

REACTIONS (10)
  - Device related infection [Recovered/Resolved]
  - Drug interaction [Recovered/Resolved]
  - Lymphopenia [Recovered/Resolved]
  - Mycobacterium fortuitum infection [Recovered/Resolved]
  - Peritonitis bacterial [Recovered/Resolved]
  - Off label use [Unknown]
  - Mycobacterial peritonitis [Recovered/Resolved]
  - Nausea [Recovered/Resolved]
  - Decreased appetite [Recovered/Resolved]
  - Electrocardiogram QT prolonged [Recovered/Resolved]
